FAERS Safety Report 23854415 (Version 2)
Quarter: 2024Q2

REPORT INFORMATION
  Report Type: Spontaneous
  Country: JP (occurrence: None)
  Receive Date: 20240514
  Receipt Date: 20240607
  Transmission Date: 20240716
  Serious: Yes (Hospitalization, Other)
  Sender: FDA-Public Use
  Company Number: 2024A112179

PATIENT
  Age: 19960 Day
  Sex: Male
  Weight: 79 kg

DRUGS (14)
  1. SEROQUEL [Suspect]
     Active Substance: QUETIAPINE FUMARATE
     Indication: Schizophrenia
     Dosage: 600 MG/DAY, UNKNOWN FREQ.600.0MG UNKNOWN
     Route: 048
  2. SEROQUEL [Suspect]
     Active Substance: QUETIAPINE FUMARATE
     Indication: Product used for unknown indication
     Dosage: 600 MG/DAY, UNKNOWN FREQ.600.0MG UNKNOWN
     Route: 048
  3. SEROQUEL [Suspect]
     Active Substance: QUETIAPINE FUMARATE
     Indication: Schizophrenia
     Dosage: 300 MG, TWICE DAILY(30 MINUTES AFTER DINNER AND BEFORE BEDTIME)300.0MG UNKNOWN
     Route: 048
  4. SEROQUEL [Suspect]
     Active Substance: QUETIAPINE FUMARATE
     Indication: Product used for unknown indication
     Dosage: 300 MG, TWICE DAILY(30 MINUTES AFTER DINNER AND BEFORE BEDTIME)300.0MG UNKNOWN
     Route: 048
  5. SEROQUEL [Suspect]
     Active Substance: QUETIAPINE FUMARATE
     Indication: Schizophrenia
     Dosage: LARGE AMOUNT, UNKNOWN FREQ. UNKNOWN
     Route: 048
     Dates: start: 20240514
  6. SEROQUEL [Suspect]
     Active Substance: QUETIAPINE FUMARATE
     Indication: Product used for unknown indication
     Dosage: LARGE AMOUNT, UNKNOWN FREQ. UNKNOWN
     Route: 048
     Dates: start: 20240514
  7. SEROQUEL [Suspect]
     Active Substance: QUETIAPINE FUMARATE
     Indication: Schizophrenia
     Dosage: 300 MG, TWICE DAILY(30 MINUTES AFTER DINNER AND BEFORE BEDTIME)300.0MG UNKNOWN
     Route: 048
  8. SEROQUEL [Suspect]
     Active Substance: QUETIAPINE FUMARATE
     Indication: Product used for unknown indication
     Dosage: 300 MG, TWICE DAILY(30 MINUTES AFTER DINNER AND BEFORE BEDTIME)300.0MG UNKNOWN
     Route: 048
  9. BROMAZEPAM [Suspect]
     Active Substance: BROMAZEPAM
     Indication: Schizophrenia
     Dosage: 2 MG, THRICE DAILY(AROUND 30 MINUTES AFTER EACH MEAL)
     Route: 048
  10. BROTIZOLAM [Suspect]
     Active Substance: BROTIZOLAM
     Indication: Product used for unknown indication
     Dosage: 0.25 MG, ONCE DAILY(BEFORE BEDTIME)
     Route: 048
  11. LITHIUM CARBONATE [Suspect]
     Active Substance: LITHIUM CARBONATE
     Indication: Schizophrenia
     Dosage: 200 MG, TWICE DAILY(AFTER BREAKFAST AND BEFORE BED)
     Route: 048
  12. PAXIL CR [Suspect]
     Active Substance: PAROXETINE HYDROCHLORIDE
     Indication: Schizophrenia
     Dosage: 50 MG, ONCE DAILY(AROUND 30 MINUTES AFTER DINNER)
     Route: 048
  13. LIPITOR [Concomitant]
     Active Substance: ATORVASTATIN CALCIUM
     Indication: Product used for unknown indication
     Dosage: 10 MG, ONCE DAILY(BEFORE BEDTIME)
     Route: 048
  14. MAGNESIUM OXIDE [Concomitant]
     Active Substance: MAGNESIUM OXIDE
     Indication: Product used for unknown indication
     Dosage: 330 MG, TWICE DAILY(AROUND 30 MINUTES AFTER BREAKFAST AND DINNER)
     Route: 048

REACTIONS (8)
  - Road traffic accident [Unknown]
  - Patella fracture [Recovering/Resolving]
  - Thoracic vertebral fracture [Unknown]
  - Wound infection [Unknown]
  - Cervical vertebral fracture [Recovering/Resolving]
  - Cervical vertebral fracture [Recovering/Resolving]
  - Cervical vertebral fracture [Recovering/Resolving]
  - Cervical vertebral fracture [Recovering/Resolving]

NARRATIVE: CASE EVENT DATE: 20240302
